FAERS Safety Report 6130274-0 (Version None)
Quarter: 2009Q1

REPORT INFORMATION
  Report Type: 
  Country: None (occurrence: None)
  Receive Date: 20090324
  Receipt Date: 20090317
  Transmission Date: 20090719
  Serious: Yes (Disabling, Other)
  Sender: FDA-Public Use
  Company Number: PHEH2008US10039

PATIENT
  Sex: Female
  Weight: 87.075 kg

DRUGS (12)
  1. RECLAST [Suspect]
     Indication: OSTEOPOROSIS
     Dosage: 5 MG, ONCE/SINGLE
     Dates: start: 20080926, end: 20080926
  2. CRESTOR [Suspect]
     Indication: BLOOD CHOLESTEROL
     Dosage: 10 MG, UNK
     Route: 048
  3. PRILOSEC [Concomitant]
     Indication: GASTROOESOPHAGEAL REFLUX DISEASE
     Dosage: 20 MG, UNK
     Route: 048
  4. PLAVIX [Concomitant]
     Dosage: 75 MG, UNK
     Route: 048
  5. ASPIRIN [Concomitant]
  6. VITAMIN D [Concomitant]
  7. COZAAR [Concomitant]
     Indication: HYPERTENSION
     Dosage: 100 MG, UNK
  8. AMLODIPINE [Concomitant]
  9. METHIMAZOLE [Concomitant]
     Indication: HYPERTHYROIDISM
     Dosage: 5 MG, UNK
     Route: 048
  10. HYZAAR [Concomitant]
  11. ALEVE [Concomitant]
  12. ADVIL [Concomitant]

REACTIONS (34)
  - ALOPECIA [None]
  - ARTHRALGIA [None]
  - ASTHENIA [None]
  - BACK PAIN [None]
  - BLOOD CHOLESTEROL INCREASED [None]
  - BLOOD PRESSURE INCREASED [None]
  - BONE PAIN [None]
  - CHILLS [None]
  - CONTUSION [None]
  - DEPRESSION [None]
  - EYE DISORDER [None]
  - FEELING ABNORMAL [None]
  - FEELING COLD [None]
  - GAIT DISTURBANCE [None]
  - HEADACHE [None]
  - HYPOAESTHESIA FACIAL [None]
  - INFLUENZA [None]
  - INFLUENZA LIKE ILLNESS [None]
  - MALAISE [None]
  - MASS [None]
  - MOBILITY DECREASED [None]
  - MYALGIA [None]
  - NAIL DISORDER [None]
  - OCULAR ICTERUS [None]
  - OROPHARYNGEAL PAIN [None]
  - OSTEOPOROSIS [None]
  - PAIN [None]
  - PAIN IN JAW [None]
  - PARALYSIS [None]
  - SLEEP DISORDER [None]
  - STENT PLACEMENT [None]
  - SUICIDAL IDEATION [None]
  - THROAT IRRITATION [None]
  - VISION BLURRED [None]
